FAERS Safety Report 10246378 (Version 6)
Quarter: 2016Q4

REPORT INFORMATION
  Report Type: Spontaneous
  Country: US (occurrence: US)
  Receive Date: 20140619
  Receipt Date: 20161129
  Transmission Date: 20170206
  Serious: Yes (Other)
  Sender: FDA-Public Use
  Company Number: US-PFIZER INC-2014167268

PATIENT
  Age: 43 Year
  Sex: Female
  Weight: 69 kg

DRUGS (3)
  1. LYRICA [Suspect]
     Active Substance: PREGABALIN
     Indication: FIBROMYALGIA
     Dosage: 300 MG, 2X/DAY, TAKE 2 PO ASH AND 2 AT BREAKFAST
     Route: 048
     Dates: start: 2012
  2. RELPAX [Suspect]
     Active Substance: ELETRIPTAN HYDROBROMIDE
     Indication: HEADACHE
  3. RELPAX [Suspect]
     Active Substance: ELETRIPTAN HYDROBROMIDE
     Indication: MIGRAINE
     Dosage: 40 MG, 1X/DAY AS NEEDED,IF HEADACHE RETURNS, MAY REPEAT DOSE AFTER 2 HOURS. NO MORE THAN TWO DOSES W
     Route: 048
     Dates: start: 2005

REACTIONS (2)
  - Overdose [Unknown]
  - Foot deformity [Unknown]

NARRATIVE: CASE EVENT DATE: 2012
